FAERS Safety Report 18638841 (Version 1)
Quarter: 2020Q4

REPORT INFORMATION
  Report Type: Spontaneous
  Country: SG (occurrence: SG)
  Receive Date: 20201219
  Receipt Date: 20201219
  Transmission Date: 20210114
  Serious: Yes (Life-Threatening, Hospitalization, Other)
  Sender: FDA-Public Use
  Company Number: SG-ACCORD-205917

PATIENT
  Age: 45 Year
  Sex: Male

DRUGS (1)
  1. AMLODIPINE [Suspect]
     Active Substance: AMLODIPINE BESYLATE
     Dosage: STRENGTH : 5 MG, WAS RECEIVING FOR MENTALLY STRESSED
     Route: 048

REACTIONS (11)
  - Hypotension [Recovered/Resolved]
  - Sepsis [Recovered/Resolved]
  - Blood creatinine increased [Recovered/Resolved]
  - Phlebitis [Recovered/Resolved]
  - Staphylococcal infection [Recovered/Resolved]
  - Wrong product administered [Unknown]
  - Pneumonia klebsiella [Recovered/Resolved]
  - Sinus bradycardia [Recovered/Resolved]
  - Intentional overdose [Unknown]
  - Metabolic acidosis [Recovered/Resolved]
  - Pneumonia staphylococcal [Recovered/Resolved]
